FAERS Safety Report 21197014 (Version 12)
Quarter: 2023Q1

REPORT INFORMATION
  Report Type: Report from Study
  Country: US (occurrence: US)
  Receive Date: 20220810
  Receipt Date: 20230215
  Transmission Date: 20230417
  Serious: No
  Sender: FDA-Public Use
  Company Number: US-NOVARTISTESTPH-NVSC2022US180988

PATIENT
  Sex: Female

DRUGS (1)
  1. COSENTYX [Suspect]
     Active Substance: SECUKINUMAB
     Indication: Psoriasis
     Dosage: UNK
     Route: 058

REACTIONS (11)
  - Malaise [Unknown]
  - Fatigue [Unknown]
  - Sleep deficit [Unknown]
  - Hypokinesia [Unknown]
  - Exostosis [Unknown]
  - Hypersensitivity [Unknown]
  - Skin lesion [Recovering/Resolving]
  - Sinusitis [Unknown]
  - Cough [Unknown]
  - Back pain [Not Recovered/Not Resolved]
  - Therapeutic product effect incomplete [Unknown]
